FAERS Safety Report 16943472 (Version 1)
Quarter: 2019Q4

REPORT INFORMATION
  Report Type: Spontaneous
  Country: US (occurrence: US)
  Receive Date: 20191022
  Receipt Date: 20191022
  Transmission Date: 20200122
  Serious: No
  Sender: FDA-Public Use
  Company Number: US-GILEAD-2019-0433828

PATIENT
  Sex: Male

DRUGS (1)
  1. EPCLUSA [Suspect]
     Active Substance: SOFOSBUVIR\VELPATASVIR
     Indication: HEPATITIS C
     Dosage: UNK
     Route: 065
     Dates: start: 20191003, end: 20191013

REACTIONS (5)
  - Renal impairment [Unknown]
  - Nausea [Recovered/Resolved]
  - Blood creatinine increased [Unknown]
  - Musculoskeletal discomfort [Recovered/Resolved]
  - Fatigue [Recovered/Resolved]
